FAERS Safety Report 6198524-2 (Version None)
Quarter: 2009Q2

REPORT INFORMATION
  Report Type: 
  Country: None (occurrence: None)
  Receive Date: 20090521
  Receipt Date: 20090514
  Transmission Date: 20091009
  Serious: Yes (Other)
  Sender: FDA-Public Use
  Company Number: PHEH2009US04837

PATIENT
  Age: 53 Year
  Sex: Female

DRUGS (2)
  1. RITALIN LA [Suspect]
     Indication: DISTURBANCE IN ATTENTION
     Dosage: UNK MG, UNK
  2. XANAX [Concomitant]
     Dosage: UNK

REACTIONS (4)
  - CONFUSIONAL STATE [None]
  - DRUG INEFFECTIVE [None]
  - FATIGUE [None]
  - THINKING ABNORMAL [None]
